FAERS Safety Report 19663449 (Version 2)
Quarter: 2021Q3

REPORT INFORMATION
  Report Type: Spontaneous
  Country: US (occurrence: US)
  Receive Date: 20210805
  Receipt Date: 20210813
  Transmission Date: 20211014
  Serious: Yes (Hospitalization, Other)
  Sender: FDA-Public Use
  Company Number: US-TEVA-2021-US-1938296

PATIENT
  Age: 72 Year
  Sex: Male

DRUGS (10)
  1. BEVACIZUMAB. [Suspect]
     Active Substance: BEVACIZUMAB
     Indication: METASTATIC RENAL CELL CARCINOMA
     Route: 065
  2. NIVOLUMAB [Concomitant]
     Active Substance: NIVOLUMAB
     Indication: METASTATIC RENAL CELL CARCINOMA
     Route: 065
  3. ATROPINE W/DIPHENOXYLATE [Suspect]
     Active Substance: ATROPINE\DIPHENOXYLATE
     Indication: VOMITING
     Dosage: ATROPINE?DIPHENOXYLATE
     Route: 065
  4. LOPERAMIDE [Suspect]
     Active Substance: LOPERAMIDE
     Indication: DIARRHOEA
     Route: 065
  5. AXITINIB [Suspect]
     Active Substance: AXITINIB
     Indication: METASTATIC RENAL CELL CARCINOMA
     Dosage: 10 MILLIGRAM DAILY;
     Route: 065
  6. CABOZANTINIB [Suspect]
     Active Substance: CABOZANTINIB
     Dosage: 40 MILLIGRAM DAILY;
     Route: 065
  7. OPIUM. [Suspect]
     Active Substance: OPIUM
     Indication: VOMITING
     Dosage: DOSE: UP TO 6 MG DAILY AS NEEDED; TINCTURE
     Route: 065
  8. CABOZANTINIB [Suspect]
     Active Substance: CABOZANTINIB
     Dosage: 20 MILLIGRAM DAILY;
     Route: 065
  9. ERLOTINIB [Suspect]
     Active Substance: ERLOTINIB
     Indication: METASTATIC RENAL CELL CARCINOMA
     Route: 065
  10. CABOZANTINIB [Suspect]
     Active Substance: CABOZANTINIB
     Indication: METASTATIC RENAL CELL CARCINOMA
     Dosage: 60 MILLIGRAM DAILY;
     Route: 065

REACTIONS (7)
  - Diarrhoea [Unknown]
  - Hypertension [Unknown]
  - Dehydration [Unknown]
  - Cough [Unknown]
  - Drug ineffective [Unknown]
  - Somnolence [Unknown]
  - Renal impairment [Unknown]
